FAERS Safety Report 21595427 (Version 4)
Quarter: 2022Q4

REPORT INFORMATION
  Report Type: Report from Study
  Country: JP (occurrence: JP)
  Receive Date: 20221115
  Receipt Date: 20221228
  Transmission Date: 20230113
  Serious: Yes (Hospitalization, Other)
  Sender: FDA-Public Use
  Company Number: JP-ONO-2019JP039288

PATIENT
  Age: 76 Year
  Sex: Male
  Weight: 55.9 kg

DRUGS (37)
  1. ETELCALCETIDE [Suspect]
     Active Substance: ETELCALCETIDE
     Indication: Hyperparathyroidism secondary
     Dosage: 2.5 MILLIGRAM, UNK
     Route: 010
     Dates: start: 20190325, end: 20190408
  2. ETELCALCETIDE [Suspect]
     Active Substance: ETELCALCETIDE
     Dosage: 5 MILLIGRAM, UNK
     Route: 065
     Dates: start: 20190410, end: 20200203
  3. ETELCALCETIDE [Suspect]
     Active Substance: ETELCALCETIDE
     Dosage: 7.5 MILLIGRAM, UNK
     Route: 065
     Dates: start: 20200205, end: 20200309
  4. ETELCALCETIDE [Suspect]
     Active Substance: ETELCALCETIDE
     Dosage: 10 MILLIGRAM, UNK
     Route: 065
     Dates: start: 20200311, end: 20210908
  5. ETELCALCETIDE [Suspect]
     Active Substance: ETELCALCETIDE
     Dosage: 5 MILLIGRAM, UNK
     Route: 065
     Dates: start: 20210910
  6. ROCALTROL [Concomitant]
     Active Substance: CALCITRIOL
     Dosage: 0.25 MICROGRAM, QD
     Route: 048
     Dates: start: 20190206, end: 20191209
  7. ONEALFA [Concomitant]
     Active Substance: ALFACALCIDOL
     Dosage: 0.25 MICROGRAM, QD
     Route: 048
     Dates: start: 20200418
  8. SODIUM FERROUS CITRATE [Concomitant]
     Active Substance: SODIUM FERROUS CITRATE
     Indication: Iron deficiency anaemia
     Dosage: 200 MILLIGRAM, QD
     Route: 048
     Dates: start: 20200612, end: 20200622
  9. SODIUM FERROUS CITRATE [Concomitant]
     Active Substance: SODIUM FERROUS CITRATE
     Dosage: 100 MILLIGRAM, QD
     Route: 048
     Dates: start: 20210122, end: 20211222
  10. SODIUM FERROUS CITRATE [Concomitant]
     Active Substance: SODIUM FERROUS CITRATE
     Dosage: 50 MILLIGRAM, QD  (AFTER BREAKFAST)
     Route: 048
     Dates: start: 20211223
  11. Fesin [Concomitant]
     Dosage: 40 MILLIGRAM, QWK
     Route: 065
     Dates: end: 20190906
  12. Fesin [Concomitant]
     Dosage: 40 MILLIGRAM, QWK
     Route: 065
     Dates: start: 20200812, end: 20201014
  13. FUROSEMIDE [Concomitant]
     Active Substance: FUROSEMIDE
     Indication: Chronic kidney disease
     Dosage: 40 MILLIGRAM, AFTER BREAKFAST
     Route: 048
     Dates: start: 20190904
  14. OLMESARTAN MEDOXOMIL [Concomitant]
     Active Substance: OLMESARTAN MEDOXOMIL
     Indication: Hypertension
     Dosage: 20 MILLIGRAM, AFTER BREAKFAST
     Route: 048
     Dates: start: 20210625
  15. FERRIC CITRATE ANHYDROUS [Concomitant]
     Active Substance: FERRIC CITRATE ANHYDROUS
     Indication: Hyperphosphataemia
     Dosage: 2250 MILLIGRAM, QD
     Route: 048
     Dates: start: 20210804, end: 20211221
  16. FERRIC CITRATE ANHYDROUS [Concomitant]
     Active Substance: FERRIC CITRATE ANHYDROUS
     Dosage: 1500 MILLIGRAM, QD
     Route: 048
     Dates: start: 20211222, end: 20220125
  17. FERRIC CITRATE ANHYDROUS [Concomitant]
     Active Substance: FERRIC CITRATE ANHYDROUS
     Dosage: 2000 MILLIGRAM, AFTER EACH MEAL (750 MG IN THE MORNING AND EVENING, 500 MG IN THE AFTERNOON)
     Route: 048
     Dates: start: 20220126, end: 20221101
  18. FERRIC CITRATE ANHYDROUS [Concomitant]
     Active Substance: FERRIC CITRATE ANHYDROUS
     Dosage: 1500 MILLIGRAM, QD
     Route: 048
     Dates: start: 20221102
  19. P-tol [Concomitant]
     Dosage: 1500 MILLIGRAM, QD
     Route: 048
     Dates: start: 20210526, end: 20210629
  20. LANSOPRAZOLE [Concomitant]
     Active Substance: LANSOPRAZOLE
     Indication: Gastritis prophylaxis
     Dosage: 30 MILLIGRAM, UNK
     Route: 048
  21. AMLODIPINE [Concomitant]
     Active Substance: AMLODIPINE BESYLATE
     Indication: Hypertension
     Dosage: 7.5 UNK
     Route: 048
     Dates: start: 20211124
  22. FOSRENOL [Concomitant]
     Active Substance: LANTHANUM CARBONATE
     Dosage: 2250 MILLIGRAM, QD
     Route: 065
     Dates: end: 20210525
  23. FOSRENOL [Concomitant]
     Active Substance: LANTHANUM CARBONATE
     Dosage: 1500 MILLIGRAM, QD
     Route: 065
     Dates: start: 20210526, end: 20210629
  24. FOSRENOL [Concomitant]
     Active Substance: LANTHANUM CARBONATE
     Dosage: 2250 MILLIGRAM, QD
     Route: 065
     Dates: start: 20210630, end: 20210803
  25. FOSRENOL [Concomitant]
     Active Substance: LANTHANUM CARBONATE
     Dosage: 750 MILLIGRAM, QD
     Route: 065
     Dates: start: 20211222, end: 20220125
  26. DARBEPOETIN ALFA [Concomitant]
     Active Substance: DARBEPOETIN ALFA
     Indication: Nephrogenic anaemia
     Dosage: 10 MUG, QW
     Route: 042
     Dates: start: 20190913, end: 20200724
  27. DARBEPOETIN ALFA [Concomitant]
     Active Substance: DARBEPOETIN ALFA
     Dosage: 20 MUG, QW
     Dates: start: 20200731, end: 20200731
  28. DARBEPOETIN ALFA [Concomitant]
     Active Substance: DARBEPOETIN ALFA
     Dosage: 30 MUG, QW
     Route: 040
     Dates: start: 20200807, end: 20200821
  29. DARBEPOETIN ALFA [Concomitant]
     Active Substance: DARBEPOETIN ALFA
     Dosage: 40 MUG, QW
     Dates: start: 20200828, end: 20201002
  30. DARBEPOETIN ALFA [Concomitant]
     Active Substance: DARBEPOETIN ALFA
     Dosage: 30 MUG, QW
     Dates: start: 20201009, end: 20201106
  31. DARBEPOETIN ALFA [Concomitant]
     Active Substance: DARBEPOETIN ALFA
     Dosage: 15 MUG, QW
     Dates: start: 20210205, end: 20210312
  32. DARBEPOETIN ALFA [Concomitant]
     Active Substance: DARBEPOETIN ALFA
     Dosage: 30 MUG, QW
     Dates: start: 20210319, end: 20210716
  33. DARBEPOETIN ALFA [Concomitant]
     Active Substance: DARBEPOETIN ALFA
     Dosage: 40 MUG, QW
     Dates: start: 20210723, end: 20211015
  34. DARBEPOETIN ALFA [Concomitant]
     Active Substance: DARBEPOETIN ALFA
     Dosage: 180 MUG, QW
     Dates: start: 20220819, end: 20221104
  35. DARBEPOETIN ALFA [Concomitant]
     Active Substance: DARBEPOETIN ALFA
     Dosage: 120 MUG, QW
     Dates: start: 20221111, end: 20221118
  36. DARBEPOETIN ALFA [Concomitant]
     Active Substance: DARBEPOETIN ALFA
     Dosage: 60 MUG, QW
     Dates: start: 20221125
  37. POTASSIUM GLUCONATE [Concomitant]
     Active Substance: POTASSIUM GLUCONATE
     Indication: Prophylaxis
     Dosage: 3 GRAM, Q8H
     Route: 048
     Dates: start: 20220907

REACTIONS (10)
  - Peripheral arterial occlusive disease [Recovering/Resolving]
  - Coronary artery stenosis [Recovering/Resolving]
  - Haemorrhage subcutaneous [Recovered/Resolved]
  - Shunt stenosis [Recovered/Resolved]
  - Shunt stenosis [Recovered/Resolved]
  - Shunt stenosis [Recovered/Resolved]
  - Dialysis hypotension [Recovering/Resolving]
  - Shunt stenosis [Recovered/Resolved]
  - Shunt stenosis [Recovered/Resolved]
  - SARS-CoV-2 test positive [Not Recovered/Not Resolved]

NARRATIVE: CASE EVENT DATE: 20190522
